FAERS Safety Report 23333738 (Version 1)
Quarter: 2023Q4

REPORT INFORMATION
  Report Type: Spontaneous
  Country: DE (occurrence: DE)
  Receive Date: 20231223
  Receipt Date: 20231223
  Transmission Date: 20240110
  Serious: Yes (Other)
  Sender: FDA-Public Use
  Company Number: DE-CELLTRION INC.-2023DE024115

PATIENT

DRUGS (11)
  1. ADALIMUMAB [Suspect]
     Active Substance: ADALIMUMAB\ISOPROPYL ALCOHOL
     Indication: Product used for unknown indication
     Dosage: 40 MG, EVERY 1 WEEK
     Route: 058
     Dates: start: 201808, end: 202208
  2. ADALIMUMAB [Suspect]
     Active Substance: ADALIMUMAB\ISOPROPYL ALCOHOL
     Indication: Product used for unknown indication
     Dosage: 20 MG, EVERY 2 WEEKS
     Route: 058
     Dates: start: 201803, end: 201808
  3. PREDNISOLONE [Suspect]
     Active Substance: PREDNISOLONE
     Indication: Ileal stenosis
     Dosage: UNK
     Route: 065
     Dates: start: 201901
  4. PREDNISOLONE [Suspect]
     Active Substance: PREDNISOLONE
     Dosage: UNK
     Route: 065
     Dates: start: 202205
  5. PREDNISOLONE [Suspect]
     Active Substance: PREDNISOLONE
     Dosage: UNK
     Route: 065
     Dates: start: 201707
  6. UPADACITINIB [Suspect]
     Active Substance: UPADACITINIB
     Indication: Product used for unknown indication
     Dosage: UNK
     Route: 048
     Dates: start: 202307
  7. BUDESONIDE [Concomitant]
     Active Substance: BUDESONIDE
     Indication: Product used for unknown indication
     Dosage: 9 MG, ONGOING AS OF AUG-2019
     Dates: start: 201709
  8. AZATHIOPRINE [Concomitant]
     Active Substance: AZATHIOPRINE
     Indication: Product used for unknown indication
     Dosage: 200 MG, EVERY 1 DAY
     Dates: start: 201709, end: 201803
  9. USTEKINUMAB [Concomitant]
     Active Substance: USTEKINUMAB
     Indication: Product used for unknown indication
     Dosage: UNK
     Dates: start: 202208
  10. VEDOLIZUMAB [Concomitant]
     Active Substance: VEDOLIZUMAB
     Indication: Product used for unknown indication
     Dosage: UNK
     Dates: start: 201909
  11. RISANKIZUMAB [Concomitant]
     Active Substance: RISANKIZUMAB
     Indication: Product used for unknown indication

REACTIONS (34)
  - Ileocaecal resection [Unknown]
  - Ileal stenosis [Unknown]
  - Ileal stenosis [Unknown]
  - Ileal stenosis [Unknown]
  - Terminal ileitis [Unknown]
  - Terminal ileitis [Unknown]
  - Terminal ileitis [Unknown]
  - Anastomotic stenosis [Unknown]
  - Anastomotic stenosis [Unknown]
  - Anastomotic ulcer [Unknown]
  - Hot flush [Unknown]
  - Decreased appetite [Unknown]
  - Decreased appetite [Unknown]
  - Dyschezia [Unknown]
  - Diarrhoea [Unknown]
  - Diarrhoea [Unknown]
  - Diarrhoea [Unknown]
  - Lipase increased [Unknown]
  - Myalgia [Unknown]
  - Weight decreased [Unknown]
  - Transaminases increased [Unknown]
  - Laboratory test abnormal [Unknown]
  - Condition aggravated [Unknown]
  - Abscess [Unknown]
  - Weight decreased [Unknown]
  - Arthralgia [Unknown]
  - Weight decreased [Unknown]
  - Night sweats [Unknown]
  - Weight increased [Unknown]
  - Abdominal pain [Unknown]
  - Decreased appetite [Unknown]
  - Abdominal pain [Unknown]
  - Abdominal pain [Unknown]
  - Night sweats [Unknown]

NARRATIVE: CASE EVENT DATE: 20180301
